FAERS Safety Report 7549827-8 (Version None)
Quarter: 2011Q2

REPORT INFORMATION
  Report Type: 
  Country: None (occurrence: None)
  Receive Date: 20110615
  Receipt Date: 20110608
  Transmission Date: 20111010
  Serious: Yes (Hospitalization, Other)
  Sender: FDA-Public Use
  Company Number: US-MERCK-0705USA02829

PATIENT
  Age: 51 Year
  Sex: Female
  Weight: 68 kg

DRUGS (1)
  1. FOSAMAX [Suspect]
     Indication: OSTEOPENIA
     Route: 048
     Dates: start: 20020101, end: 20030604

REACTIONS (43)
  - VAGINAL HAEMORRHAGE [None]
  - CHRONIC HEPATIC FAILURE [None]
  - ARTHRITIS [None]
  - DYSPNOEA [None]
  - CHEST PAIN [None]
  - PIRIFORMIS SYNDROME [None]
  - TOOTH ABSCESS [None]
  - CARTILAGE INJURY [None]
  - ANXIETY [None]
  - BLOOD PRESSURE INCREASED [None]
  - ABDOMINAL PAIN [None]
  - DRY MOUTH [None]
  - ENCEPHALOPATHY [None]
  - ANORECTAL DISORDER [None]
  - INSOMNIA [None]
  - HEPATITIS C [None]
  - GENITAL HERPES [None]
  - VULVAL DISORDER [None]
  - GASTROENTERITIS VIRAL [None]
  - RIB FRACTURE [None]
  - LIP NEOPLASM MALIGNANT STAGE UNSPECIFIED [None]
  - HYPOGLYCAEMIA [None]
  - HAEMATEMESIS [None]
  - WEIGHT INCREASED [None]
  - HYPERTONIC BLADDER [None]
  - OSTEONECROSIS OF JAW [None]
  - INTENTIONAL OVERDOSE [None]
  - IRRITABLE BOWEL SYNDROME [None]
  - NOCTURIA [None]
  - JAW DISORDER [None]
  - UPPER GASTROINTESTINAL HAEMORRHAGE [None]
  - SINUSITIS [None]
  - MUSCLE SPASMS [None]
  - DRUG INEFFECTIVE [None]
  - CONSTIPATION [None]
  - PRODUCTIVE COUGH [None]
  - RECTAL HAEMORRHAGE [None]
  - GASTROENTERITIS [None]
  - EPISTAXIS [None]
  - MENISCUS LESION [None]
  - SKIN EXFOLIATION [None]
  - COUGH [None]
  - BRONCHITIS [None]
